FAERS Safety Report 24128313 (Version 1)
Quarter: 2024Q3

REPORT INFORMATION
  Report Type: Spontaneous
  Country: US (occurrence: US)
  Receive Date: 20240723
  Receipt Date: 20240723
  Transmission Date: 20241016
  Serious: Yes (Hospitalization)
  Sender: MYLAN
  Company Number: US-MYLANLABS-2024M1066549

PATIENT
  Age: 55 Year
  Sex: Female

DRUGS (8)
  1. LIDOCAINE [Suspect]
     Active Substance: LIDOCAINE
     Indication: Mucosal inflammation
     Dosage: UNK; LIDOCAINE LIQUID
     Route: 065
  2. GABAPENTIN [Suspect]
     Active Substance: GABAPENTIN
     Indication: Mucosal inflammation
     Dosage: UNK
     Route: 065
  3. ACETAMINOPHEN\HYDROCODONE [Suspect]
     Active Substance: ACETAMINOPHEN\HYDROCODONE
     Indication: Mucosal inflammation
     Dosage: UNK (HYDROCODONE/PARACETAMOL 7.5/325 MG ELIXIR)
     Route: 065
  4. SERTRALINE [Concomitant]
     Active Substance: SERTRALINE HYDROCHLORIDE
     Indication: Post-traumatic stress disorder
     Dosage: 50 MILLIGRAM
     Route: 065
  5. QUETIAPINE [Concomitant]
     Active Substance: QUETIAPINE
     Indication: Post-traumatic stress disorder
     Dosage: 25 MILLIGRAM
     Route: 065
  6. HYDROMORPHONE [Concomitant]
     Active Substance: HYDROMORPHONE
     Indication: Pain
     Dosage: 0.5 MILLIGRAM, Q2H
     Route: 042
  7. AMFETAMINE SULFATE;DEXAMFETAMINE [Concomitant]
     Indication: Attention deficit hyperactivity disorder
  8. NALOXONE [Concomitant]
     Active Substance: NALOXONE
     Indication: Product used for unknown indication
     Dosage: UNK
     Route: 065

REACTIONS (2)
  - Drug ineffective for unapproved indication [Unknown]
  - Off label use [Unknown]
